FAERS Safety Report 9430592 (Version 1)
Quarter: 2013Q3

REPORT INFORMATION
  Report Type: Spontaneous
  Country: SE (occurrence: SE)
  Receive Date: 20130730
  Receipt Date: 20130730
  Transmission Date: 20140515
  Serious: No
  Sender: FDA-Public Use
  Company Number: SE-JNJFOC-20130710856

PATIENT
  Age: 58 Year
  Sex: Female

DRUGS (3)
  1. DUROGESIC [Suspect]
     Indication: PAIN
     Route: 062
  2. DUROGESIC [Suspect]
     Indication: PAIN
     Route: 062
  3. DUROGESIC [Suspect]
     Indication: PAIN
     Dosage: 12.5 UG/HR PATCH AND ONE DIVIDED 12.5 UG/HR PATCH
     Route: 062

REACTIONS (6)
  - Nausea [Unknown]
  - Vomiting [Unknown]
  - Drug ineffective [Unknown]
  - Wrong technique in drug usage process [Unknown]
  - Product quality issue [Unknown]
  - Wrong technique in drug usage process [Unknown]
